FAERS Safety Report 7610868-3 (Version None)
Quarter: 2011Q3

REPORT INFORMATION
  Report Type: 
  Country: None (occurrence: None)
  Receive Date: 20110707
  Receipt Date: 20110627
  Transmission Date: 20111222
  Serious: Yes (Other)
  Sender: FDA-Public Use
  Company Number: DSA_46959_2011

PATIENT
  Sex: Male

DRUGS (2)
  1. BUPROPION HYDROCHLORIDE [Suspect]
     Indication: DEPRESSION
     Dosage: 150 MG QD, ORAL
     Route: 048
     Dates: start: 20110414
  2. IBUPROFEN [Concomitant]

REACTIONS (1)
  - AZOOSPERMIA [None]
